FAERS Safety Report 16158018 (Version 1)
Quarter: 2019Q2

REPORT INFORMATION
  Report Type: Spontaneous
  Country: CN (occurrence: CN)
  Receive Date: 20190404
  Receipt Date: 20190404
  Transmission Date: 20190711
  Serious: Yes (Other)
  Sender: FDA-Public Use
  Company Number: CN-VALIDUS PHARMACEUTICALS LLC-CN-2019VAL000182

PATIENT

DRUGS (4)
  1. ROCALTROL [Suspect]
     Active Substance: CALCITRIOL
     Indication: OSTEOPOROSIS
     Dosage: UNK
     Route: 065
     Dates: start: 2011
  2. TRIPTERYGIUM WILFORDII [Concomitant]
     Active Substance: HERBALS
     Indication: ECZEMA
     Dosage: UNK
  3. FORSTEO [Concomitant]
     Active Substance: TERIPARATIDE
     Indication: PRODUCT USED FOR UNKNOWN INDICATION
     Dosage: UNK
     Dates: start: 20121219
  4. TRIPTERYGIUM HYPOGLAUCUM [Concomitant]
     Indication: PRODUCT USED FOR UNKNOWN INDICATION
     Dosage: UNK

REACTIONS (11)
  - Fall [Unknown]
  - Muscle atrophy [Recovering/Resolving]
  - Tibia fracture [Unknown]
  - Osteosclerosis [Unknown]
  - Arthralgia [Recovering/Resolving]
  - Femoral neck fracture [Unknown]
  - Joint ankylosis [Recovering/Resolving]
  - Muscle rigidity [Unknown]
  - Fibula fracture [Unknown]
  - Bone density decreased [Recovering/Resolving]
  - Muscular weakness [Unknown]

NARRATIVE: CASE EVENT DATE: 20120602
